FAERS Safety Report 9759392 (Version 1)
Quarter: 2013Q4

REPORT INFORMATION
  Report Type: Spontaneous
  Country: US (occurrence: None)
  Receive Date: 20131216
  Receipt Date: 20131216
  Transmission Date: 20140711
  Serious: Yes (Other)
  Sender: FDA-Public Use
  Company Number: 163-21880-12040854(0)

PATIENT
  Age: 85 Year
  Sex: Female
  Weight: 46 kg

DRUGS (1)
  1. REVLIMID (LENALIDOMIDE) (CAPSULES) [Suspect]
     Indication: PLASMA CELL MYELOMA
     Dosage: 3.75 MG, 21 IN 28 D, PO? ? ?

REACTIONS (4)
  - Diarrhoea [None]
  - Rash [None]
  - Pruritus [None]
  - Fatigue [None]
